FAERS Safety Report 7768118-3 (Version None)
Quarter: 2011Q3

REPORT INFORMATION
  Report Type: 
  Country: None (occurrence: None)
  Receive Date: 20110922
  Receipt Date: 20110914
  Transmission Date: 20111222
  Serious: No
  Sender: FDA-Public Use
  Company Number: JP-BRISTOL-MYERS SQUIBB COMPANY-15979610

PATIENT
  Age: 63 Year
  Sex: Female
  Weight: 50 kg

DRUGS (5)
  1. DEXAMETHASONE SODIUM PHOSPHATE [Concomitant]
     Indication: PREMEDICATION
     Route: 042
     Dates: start: 20110802, end: 20110802
  2. ERBITUX [Suspect]
     Indication: COLON CANCER
     Dosage: 9AUG2011:2ND INF OF 3RD LINE TREATMENT STRENGTH:5MG/ML LAST DOSE ON 2AUG2011 400MG
     Route: 041
     Dates: start: 20110802, end: 20110802
  3. IRINOTECAN HCL [Concomitant]
     Indication: COLON CANCER
     Dosage: 9AUG2011:2ND INF OF 3RD LINE TREATMENT 140 MILLICURIES
     Route: 041
     Dates: start: 20110802
  4. ZYRTEC [Concomitant]
     Indication: PREMEDICATION
     Route: 048
     Dates: start: 20110802, end: 20110802
  5. GRANISETRON [Concomitant]
     Indication: ANTIEMETIC SUPPORTIVE CARE
     Route: 042
     Dates: start: 20110802, end: 20110802

REACTIONS (4)
  - BLOOD ALKALINE PHOSPHATASE INCREASED [None]
  - ASPARTATE AMINOTRANSFERASE INCREASED [None]
  - ALANINE AMINOTRANSFERASE INCREASED [None]
  - BLOOD BILIRUBIN INCREASED [None]
